FAERS Safety Report 4360254-7 (Version None)
Quarter: 2004Q2

REPORT INFORMATION
  Report Type: 
  Country: None (occurrence: None)
  Receive Date: 20040519
  Receipt Date: 20040510
  Transmission Date: 20050107
  Serious: Yes (Other)
  Sender: FDA-Public Use
  Company Number: 200413694US

PATIENT
  Sex: 0

DRUGS (1)
  1. LOVENOX [Suspect]
     Dosage: DOSE: UNK
     Route: 058

REACTIONS (1)
  - ARTERIAL INJURY [None]
